FAERS Safety Report 8859000 (Version 1)
Quarter: 2012Q4

REPORT INFORMATION
  Report Type: 
  Country: AU (occurrence: AU)
  Receive Date: 20121024
  Receipt Date: 20121024
  Transmission Date: 20130627
  Serious: Yes (Other)
  Sender: FDA-Public Use
  Company Number: PHHY2012AU093487

PATIENT
  Sex: Male

DRUGS (4)
  1. ENABLEX [Suspect]
  2. COUMADIN [Concomitant]
  3. LIPEX [Concomitant]
  4. LOSEC [Concomitant]

REACTIONS (2)
  - Angina pectoris [Unknown]
  - Chest pain [Unknown]
